FAERS Safety Report 5472850-4 (Version None)
Quarter: 2007Q4

REPORT INFORMATION
  Report Type: 
  Country: None (occurrence: None)
  Receive Date: 20071001
  Receipt Date: 20070925
  Transmission Date: 20080405
  Serious: Yes (Other)
  Sender: FDA-Public Use
  Company Number: A0683933A

PATIENT
  Age: 61 Year
  Sex: Female

DRUGS (15)
  1. ADVAIR DISKUS 100/50 [Suspect]
     Indication: CHRONIC OBSTRUCTIVE PULMONARY DISEASE
     Route: 055
     Dates: start: 19950101, end: 19950101
  2. ADVAIR DISKUS 100/50 [Suspect]
     Dosage: 2PUFF TWICE PER DAY
     Route: 055
     Dates: start: 20070501
  3. PREMARIN [Concomitant]
  4. AVANDIA [Concomitant]
  5. UNIRETIC [Concomitant]
  6. ZYRTEC-D [Concomitant]
  7. VERELAN [Concomitant]
  8. LESCOL XL [Concomitant]
  9. LASIX [Concomitant]
  10. WELLBUTRIN SR [Concomitant]
  11. K-DUR 10 [Concomitant]
  12. OXYGEN [Concomitant]
  13. ALBUTEROL NEB [Concomitant]
  14. UNKNOWN NOSESPRAY [Concomitant]
  15. COREG [Concomitant]

REACTIONS (4)
  - CHOKING [None]
  - COUGH [None]
  - DYSPNOEA [None]
  - ILL-DEFINED DISORDER [None]
